FAERS Safety Report 7744481-4 (Version None)
Quarter: 2011Q3

REPORT INFORMATION
  Report Type: 
  Country: None (occurrence: None)
  Receive Date: 20110912
  Receipt Date: 20110907
  Transmission Date: 20111222
  Serious: Yes (Other)
  Sender: FDA-Public Use
  Company Number: US-PFIZER INC-2011210668

PATIENT
  Sex: Female
  Weight: 68 kg

DRUGS (6)
  1. METOPROLOL [Concomitant]
     Indication: HYPERTENSION
     Dosage: UNK
  2. MEXILETINE [Concomitant]
     Dosage: UNK, 2X/DAY
  3. WELLBUTRIN [Concomitant]
     Indication: DEPRESSION
     Dosage: 150 MG, 1X/DAY
  4. LORAZEPAM [Concomitant]
     Dosage: UNK
  5. GABAPENTIN [Concomitant]
     Indication: NEUROPATHY PERIPHERAL
     Dosage: 900 MG, UNK
  6. SUTENT [Suspect]
     Indication: RENAL CANCER METASTATIC
     Dosage: 25 MG, 1X/DAY
     Dates: start: 20070501

REACTIONS (3)
  - PAIN IN EXTREMITY [None]
  - ABASIA [None]
  - ORAL PAIN [None]
